FAERS Safety Report 22084940 (Version 1)
Quarter: 2023Q1

REPORT INFORMATION
  Report Type: Spontaneous
  Country: DE (occurrence: DE)
  Receive Date: 20230310
  Receipt Date: 20230310
  Transmission Date: 20230418
  Serious: Yes (Other)
  Sender: FDA-Public Use
  Company Number: None

PATIENT
  Age: 34 Year
  Sex: Female
  Weight: 68 kg

DRUGS (8)
  1. DOTAREM [Suspect]
     Active Substance: GADOTERATE MEGLUMINE
     Indication: Magnetic resonance imaging
     Dosage: START DATE-16 SEP-2004
     Route: 042
     Dates: start: 2004, end: 2004
  2. DOTAREM [Suspect]
     Active Substance: GADOTERATE MEGLUMINE
     Route: 065
     Dates: start: 20090912, end: 20090912
  3. DOTAREM [Suspect]
     Active Substance: GADOTERATE MEGLUMINE
     Route: 065
     Dates: start: 20090923, end: 20090923
  4. OMNISCAN [Suspect]
     Active Substance: GADODIAMIDE
     Indication: Hypoaesthesia
     Dosage: START DATE- 30 MARCH 2007
     Route: 065
  5. OMNISCAN [Suspect]
     Active Substance: GADODIAMIDE
     Indication: Hormone level abnormal
     Route: 065
     Dates: start: 20070410
  6. OMNISCAN [Suspect]
     Active Substance: GADODIAMIDE
     Indication: Hypothermia
     Route: 065
     Dates: start: 20130521
  7. OMNISCAN [Suspect]
     Active Substance: GADODIAMIDE
     Indication: Hypoaesthesia
  8. MAGNEVIST [Suspect]
     Active Substance: GADOPENTETATE DIMEGLUMINE
     Indication: Product used for unknown indication
     Dosage: START DATE:16 SEPTEMBER 2004
     Route: 065
     Dates: start: 2004, end: 2004

REACTIONS (31)
  - Lipoma [Recovered/Resolved with Sequelae]
  - Fibroma [Recovered/Resolved with Sequelae]
  - Pancreatic failure [Recovered/Resolved with Sequelae]
  - Polyglandular autoimmune syndrome type II [Recovered/Resolved with Sequelae]
  - Fibromyalgia [Recovered/Resolved with Sequelae]
  - Psoriasis [Recovered/Resolved with Sequelae]
  - Neurodermatitis [Recovered/Resolved with Sequelae]
  - Addison^s disease [Recovered/Resolved with Sequelae]
  - Hypophysitis [Recovered/Resolved with Sequelae]
  - Gadolinium deposition disease [Recovered/Resolved with Sequelae]
  - Feeling cold [Recovered/Resolved with Sequelae]
  - Visual impairment [Recovered/Resolved with Sequelae]
  - Oedema peripheral [Recovered/Resolved with Sequelae]
  - Skin burning sensation [Recovered/Resolved with Sequelae]
  - Paraesthesia [Recovered/Resolved with Sequelae]
  - Hypoaesthesia [Recovered/Resolved with Sequelae]
  - Neurological symptom [Recovered/Resolved with Sequelae]
  - Pain [Recovered/Resolved with Sequelae]
  - Abdominal discomfort [Recovered/Resolved with Sequelae]
  - Compulsions [Recovered/Resolved with Sequelae]
  - Skin discomfort [Recovered/Resolved with Sequelae]
  - Migraine [Recovered/Resolved with Sequelae]
  - Food intolerance [Recovered/Resolved with Sequelae]
  - Asthma exercise induced [Recovered/Resolved with Sequelae]
  - Mental fatigue [Recovered/Resolved with Sequelae]
  - Immune system disorder [Recovered/Resolved with Sequelae]
  - Haemoglobin electrophoresis abnormal [Recovered/Resolved with Sequelae]
  - Dyspepsia [Recovered/Resolved with Sequelae]
  - Eczema [Recovered/Resolved with Sequelae]
  - Allergy to chemicals [Recovered/Resolved with Sequelae]
  - Product residue present [Unknown]

NARRATIVE: CASE EVENT DATE: 20040101
